FAERS Safety Report 18117870 (Version 1)
Quarter: 2020Q3

REPORT INFORMATION
  Report Type: Spontaneous
  Country: US (occurrence: US)
  Receive Date: 20200805
  Receipt Date: 20200805
  Transmission Date: 20201103
  Serious: Yes (Other)
  Sender: FDA-Public Use
  Company Number: None

PATIENT
  Age: 62 Year
  Sex: Female
  Weight: 90.9 kg

DRUGS (14)
  1. INSULIN REGULAR SLIDING SCALE [Concomitant]
     Dates: start: 20200722, end: 20200804
  2. PANTOPRAZOLE [Concomitant]
     Active Substance: PANTOPRAZOLE
     Dates: start: 20200724, end: 20200804
  3. REMDESIVIR. [Suspect]
     Active Substance: REMDESIVIR
     Indication: COVID-19
     Route: 040
     Dates: start: 20200723, end: 20200724
  4. ATORVASTATIN [Concomitant]
     Active Substance: ATORVASTATIN
     Dates: start: 20200722, end: 20200724
  5. AZITHROMYCIN ANHYDROUS. [Concomitant]
     Active Substance: AZITHROMYCIN ANHYDROUS
     Dates: start: 20200722, end: 20200723
  6. LEVOTHYROXINE. [Concomitant]
     Active Substance: LEVOTHYROXINE
     Dates: start: 20200722, end: 20200804
  7. METFORMIN [Concomitant]
     Active Substance: METFORMIN HYDROCHLORIDE
     Dates: start: 20200722, end: 20200724
  8. DULOXETINE. [Concomitant]
     Active Substance: DULOXETINE
     Dates: start: 20200722, end: 20200804
  9. LOSARTAN. [Concomitant]
     Active Substance: LOSARTAN
     Dates: start: 20200722, end: 20200804
  10. ACETAMINOPHEN PRN [Concomitant]
     Dates: start: 20200722, end: 20200804
  11. ENOXAPARIN [Concomitant]
     Active Substance: ENOXAPARIN
     Dates: start: 20200723, end: 20200728
  12. ZOLPIDEM [Concomitant]
     Active Substance: ZOLPIDEM TARTRATE
     Dates: start: 20200722, end: 20200728
  13. CEFTRIAXONE. [Concomitant]
     Active Substance: CEFTRIAXONE
     Dates: start: 20200722, end: 20200723
  14. DEXAMETHASONE. [Concomitant]
     Active Substance: DEXAMETHASONE
     Dates: start: 20200723, end: 20200726

REACTIONS (2)
  - Liver function test increased [None]
  - Therapy interrupted [None]

NARRATIVE: CASE EVENT DATE: 20200724
